FAERS Safety Report 23387347 (Version 6)
Quarter: 2025Q4

REPORT INFORMATION
  Report Type: Report from Study
  Country: EU (occurrence: EU)
  Receive Date: 20240110
  Receipt Date: 20251204
  Transmission Date: 20260118
  Serious: Yes (Hospitalization, Other)
  Sender: ABBVIE
  Company Number: EU-ROCHE-2721547

PATIENT
  Age: 38 Year
  Sex: Female

DRUGS (22)
  1. BOTOX [Suspect]
     Active Substance: ONABOTULINUMTOXINA
     Indication: Product used for unknown indication
     Dosage: TIME INTERVAL: AS NECESSARY
     Route: 065
  2. BOTOX [Suspect]
     Active Substance: ONABOTULINUMTOXINA
     Indication: Product used for unknown indication
     Dosage: TIME INTERVAL: AS NECESSARY
     Route: 065
  3. OCREVUS [Suspect]
     Active Substance: OCRELIZUMAB
     Indication: Relapsing-remitting multiple sclerosis
     Route: 042
     Dates: start: 20210510
  4. OCREVUS [Suspect]
     Active Substance: OCRELIZUMAB
     Indication: Relapsing-remitting multiple sclerosis
     Route: 042
     Dates: start: 20201123
  5. OCREVUS [Suspect]
     Active Substance: OCRELIZUMAB
     Indication: Relapsing-remitting multiple sclerosis
     Dosage: 600 MG 174 DAYS, LAST ADMIN DATE: NOV 2020
     Route: 042
     Dates: start: 20201109
  6. OCREVUS [Suspect]
     Active Substance: OCRELIZUMAB
     Indication: Relapsing-remitting multiple sclerosis
     Route: 042
  7. COMIRNATY (TOZINAMERAN) [Suspect]
     Active Substance: TOZINAMERAN
     Indication: COVID-19 prophylaxis
     Dosage: FIRST VACCINATION
     Route: 065
  8. COMIRNATY (TOZINAMERAN) [Suspect]
     Active Substance: TOZINAMERAN
     Indication: COVID-19 prophylaxis
     Dosage: SECOND VACCINATION
     Route: 065
     Dates: start: 20210811
  9. INFLUENZA VIRUS VACCINE [Suspect]
     Active Substance: INFLUENZA VIRUS VACCINE
     Indication: Product used for unknown indication
     Route: 065
  10. VENLAFAXINE [Concomitant]
     Active Substance: VENLAFAXINE HYDROCHLORIDE
     Indication: Product used for unknown indication
     Route: 065
  11. CITALOPRAM [Concomitant]
     Active Substance: CITALOPRAM
     Indication: Product used for unknown indication
     Route: 065
  12. VITAMIN D3 [Concomitant]
     Active Substance: CHOLECALCIFEROL
     Indication: Product used for unknown indication
     Dosage: 2000 IU
     Route: 065
  13. FRANKINCENSE [Concomitant]
     Active Substance: FRANKINCENSE
     Indication: Product used for unknown indication
     Dosage: DAILY DOSE: 2 DOSAGE FORM
     Route: 065
  14. FRANKINCENSE [Concomitant]
     Active Substance: FRANKINCENSE
     Indication: Product used for unknown indication
     Route: 065
  15. Rubax [Concomitant]
     Indication: Product used for unknown indication
     Dosage: TIME INTERVAL: AS NECESSARY
     Route: 065
  16. Sab simplex [Concomitant]
     Indication: Product used for unknown indication
     Route: 065
  17. NAPROXEN [Concomitant]
     Active Substance: NAPROXEN
     Indication: Product used for unknown indication
     Dosage: TIME INTERVAL: AS NECESSARY
     Route: 065
  18. POLYETHYLENE GLYCOLS [Concomitant]
     Active Substance: POLYETHYLENE GLYCOLS
     Indication: Product used for unknown indication
     Dosage: TIME INTERVAL: AS NECESSARY
     Route: 065
  19. DALFAMPRIDINE [Concomitant]
     Active Substance: DALFAMPRIDINE
     Indication: Product used for unknown indication
     Route: 065
  20. NABIXIMOLS [Concomitant]
     Active Substance: NABIXIMOLS
     Indication: Product used for unknown indication
     Route: 065
  21. PIROXICAM [Concomitant]
     Active Substance: PIROXICAM
     Indication: Product used for unknown indication
     Route: 065
  22. Incense [Concomitant]
     Indication: Product used for unknown indication
     Dosage: 2X2
     Route: 065

REACTIONS (34)
  - Endometrial hyperplasia [Recovered/Resolved]
  - Diplegia [Recovered/Resolved]
  - Magnetic resonance imaging spinal abnormal [Not Recovered/Not Resolved]
  - Blister [Recovered/Resolved]
  - Noninfective gingivitis [Recovered/Resolved]
  - Nasopharyngitis [Recovered/Resolved]
  - Bone contusion [Unknown]
  - Chest pain [Recovered/Resolved]
  - Cystitis noninfective [Recovered/Resolved]
  - Contusion [Recovering/Resolving]
  - Acquired protein S deficiency [Not Recovered/Not Resolved]
  - Immunosuppression [Not Recovered/Not Resolved]
  - COVID-19 [Not Recovered/Not Resolved]
  - Fall [Unknown]
  - Chills [Recovered/Resolved]
  - Vomiting [Recovered/Resolved]
  - Abdominal pain upper [Recovered/Resolved]
  - Fatigue [Recovered/Resolved]
  - Dizziness [Recovered/Resolved]
  - Influenza like illness [Recovered/Resolved]
  - Musculoskeletal stiffness [Recovered/Resolved]
  - Nausea [Recovered/Resolved]
  - Asthenia [Recovered/Resolved]
  - Diarrhoea [Recovered/Resolved]
  - Muscular weakness [Recovering/Resolving]
  - Gait disturbance [Not Recovered/Not Resolved]
  - Skin abrasion [Recovered/Resolved]
  - Ligament sprain [Recovered/Resolved]
  - Arthralgia [Recovering/Resolving]
  - Ligament sprain [Recovered/Resolved]
  - C-reactive protein increased [Not Recovered/Not Resolved]
  - Skin abrasion [Recovered/Resolved]
  - Vaccination failure [Not Recovered/Not Resolved]
  - Fatigue [Recovered/Resolved]

NARRATIVE: CASE EVENT DATE: 20201109
